FAERS Safety Report 16763509 (Version 2)
Quarter: 2019Q3

REPORT INFORMATION
  Report Type: Spontaneous
  Country: SG (occurrence: SG)
  Receive Date: 20190902
  Receipt Date: 20190913
  Transmission Date: 20191005
  Serious: Yes (Other)
  Sender: FDA-Public Use
  Company Number: SG-TEVA-2019-SG-1102205

PATIENT
  Age: 6 Decade
  Sex: Female

DRUGS (6)
  1. SILDENAFIL. [Suspect]
     Active Substance: SILDENAFIL
     Indication: HEADACHE
     Route: 065
  2. PREDNISOLONE. [Suspect]
     Active Substance: PREDNISOLONE
     Indication: HEADACHE
     Route: 065
  3. AMOXICILLIN. [Suspect]
     Active Substance: AMOXICILLIN
     Indication: HEADACHE
     Route: 065
  4. DICLOFENAC [Suspect]
     Active Substance: DICLOFENAC
     Indication: HEADACHE
     Route: 065
  5. CHLORPHENAMINE [Suspect]
     Active Substance: CHLORPHENIRAMINE MALEATE
     Indication: HEADACHE
     Route: 065
  6. DEXAMETHASONE. [Suspect]
     Active Substance: DEXAMETHASONE
     Indication: HEADACHE
     Route: 065

REACTIONS (1)
  - Cushing^s syndrome [Unknown]
